FAERS Safety Report 7145397-7 (Version None)
Quarter: 2010Q4

REPORT INFORMATION
  Report Type: 
  Country: None (occurrence: None)
  Receive Date: 20101208
  Receipt Date: 20101124
  Transmission Date: 20110411
  Serious: Yes (Hospitalization)
  Sender: FDA-Public Use
  Company Number: PHHY2010FR81588

PATIENT
  Sex: Male

DRUGS (2)
  1. VALSARTAN  AND HYDROCHLOROTHIAZIDE [Suspect]
     Indication: HYPERTENSION
     Dosage: ONE TABLET DAILY
     Route: 048
     Dates: end: 20101030
  2. BISOPROLOL FUMARATE [Suspect]
     Dosage: ONE TABLET DAILY
     Route: 048
     Dates: end: 20101030

REACTIONS (5)
  - ANAEMIA [None]
  - ASTHENIA [None]
  - HAEMATOMA [None]
  - MARROW HYPERPLASIA [None]
  - THROMBOCYTOPENIA [None]
